FAERS Safety Report 9636632 (Version 1)
Quarter: 2013Q4

REPORT INFORMATION
  Report Type: Spontaneous
  Country: AT (occurrence: AT)
  Receive Date: 20131021
  Receipt Date: 20131021
  Transmission Date: 20140711
  Serious: Yes (Other)
  Sender: FDA-Public Use
  Company Number: PHHY2013AT114167

PATIENT
  Age: 54 Year
  Sex: Female

DRUGS (6)
  1. TACROLIMUS SANDOZ [Suspect]
     Indication: COLITIS ULCERATIVE
     Dosage: 2 MG, TID
     Route: 048
     Dates: start: 20130719, end: 20130918
  2. NOMEXOR [Concomitant]
  3. ULCOGANT [Concomitant]
  4. PURINETHOL [Concomitant]
  5. MESAGRAN [Concomitant]
  6. PANTOLOC [Concomitant]

REACTIONS (4)
  - Mitral valve incompetence [Not Recovered/Not Resolved]
  - Tricuspid valve incompetence [Not Recovered/Not Resolved]
  - Cardiomyopathy [Not Recovered/Not Resolved]
  - Cardiac failure [Not Recovered/Not Resolved]
